FAERS Safety Report 19093747 (Version 1)
Quarter: 2021Q2

REPORT INFORMATION
  Report Type: Other
  Country: US (occurrence: US)
  Receive Date: 20210405
  Receipt Date: 20210405
  Transmission Date: 20210717
  Serious: No
  Sender: FDA-Public Use
  Company Number: US-ROCHE-2802638

PATIENT
  Sex: Female
  Weight: 56.75 kg

DRUGS (3)
  1. OCREVUS [Suspect]
     Active Substance: OCRELIZUMAB
     Indication: RELAPSING MULTIPLE SCLEROSIS
     Dosage: (INFUSE 300 MG IV, REPEAT 1, TWO WEEKS LATER) (PRESCRIBED 300 MG ON DAY 1 AND DAY 15 AND 600 MG ONC
     Route: 042
     Dates: start: 20200916
  2. SUMATRIPTAN. [Concomitant]
     Active Substance: SUMATRIPTAN
     Dosage: 50 MG PO PRN FOR MIGRAINE REPEAT MAX 2 DOSES IN 24 HOURS
     Route: 048
  3. IBUPROFEN. [Concomitant]
     Active Substance: IBUPROFEN
     Dosage: 200 MG Q4?6 HOURS PRN

REACTIONS (1)
  - COVID-19 [Not Recovered/Not Resolved]
